FAERS Safety Report 26045389 (Version 1)
Quarter: 2025Q4

REPORT INFORMATION
  Report Type: Report from Study
  Country: EU (occurrence: EU)
  Receive Date: 20251114
  Receipt Date: 20251114
  Transmission Date: 20260117
  Serious: Yes (Other)
  Sender: ROCHE
  Company Number: EU-ROCHE-10000398411

PATIENT
  Age: 25 Year
  Sex: Female

DRUGS (4)
  1. RITUXIMAB [Suspect]
     Active Substance: RITUXIMAB
     Indication: Anti-neutrophil cytoplasmic antibody positive vasculitis
     Dosage: 500 MG OR 1000 MG EVERY 4 TO 6 MONTHS
     Route: 042
  2. AVACOPAN [Concomitant]
     Active Substance: AVACOPAN
     Indication: Anti-neutrophil cytoplasmic antibody positive vasculitis
  3. PREDNISOLONE [Concomitant]
     Active Substance: PREDNISOLONE
  4. PREDNISOLONE [Concomitant]
     Active Substance: PREDNISOLONE

REACTIONS (2)
  - Off label use [Unknown]
  - Hypogammaglobulinaemia [Unknown]
